FAERS Safety Report 8973904 (Version 1)
Quarter: 2012Q4

REPORT INFORMATION
  Report Type: 
  Country: GB (occurrence: GB)
  Receive Date: 20121218
  Receipt Date: 20121218
  Transmission Date: 20130627
  Serious: Yes (Disabling)
  Sender: FDA-Public Use
  Company Number: GB-GLAXOSMITHKLINE-B0852249A

PATIENT
  Age: 26 Year
  Sex: Female
  Weight: 48.98 kg

DRUGS (7)
  1. RETIGABINE [Suspect]
     Indication: TEMPORAL LOBE EPILEPSY
     Dosage: 600MG Per day
     Route: 048
     Dates: start: 201206, end: 201212
  2. RETIGABINE [Suspect]
     Indication: TEMPORAL LOBE EPILEPSY
     Dosage: 250MG Per day
     Route: 048
     Dates: start: 201206, end: 201212
  3. LEVETIRACETAM [Concomitant]
  4. ACETAZOLAMIDE [Concomitant]
  5. VITAMIN D [Concomitant]
  6. CALCIUM [Concomitant]
  7. IRON [Concomitant]

REACTIONS (1)
  - Simple partial seizures [Recovered/Resolved]
